FAERS Safety Report 7030581-3 (Version None)
Quarter: 2010Q4

REPORT INFORMATION
  Report Type: 
  Country: None (occurrence: None)
  Receive Date: 20101006
  Receipt Date: 20100923
  Transmission Date: 20110411
  Serious: Yes (Other)
  Sender: FDA-Public Use
  Company Number: AU-ROCHE-727981

PATIENT
  Sex: Female
  Weight: 68.7 kg

DRUGS (8)
  1. TRASTUZUMAB [Suspect]
     Dosage: LOADING DOSE. FORM: VIAL
     Route: 042
     Dates: start: 20100107
  2. TRASTUZUMAB [Suspect]
     Dosage: MAINTENANCE DOSE. TOTAL DOSE: 400 MG
     Route: 042
     Dates: start: 20100128, end: 20100713
  3. TRASTUZUMAB [Suspect]
     Dosage: MAINTENANCE DOSE. TOTAL DOSE: 430 MG, DATE OF LAST DOSE PRIOR TO SAE: 26 AUGUST 2010, FORM:VIALS
     Route: 042
     Dates: start: 20100805, end: 20100916
  4. CARBOPLATIN [Suspect]
     Dosage: FORM: VIAL, LAST DOSE PRIOR TO SAE: 22 APRIL 2010. DOSE LEVEL: 6 AUC
     Route: 042
     Dates: start: 20100107
  5. DOCETAXEL [Suspect]
     Dosage: FORM: VIAL, DOSE: 130 MG, DATE OF LAST DOSE PRIOR TO SAE: 22 APRIL 2010.
     Route: 042
     Dates: start: 20100107
  6. PANADOL [Concomitant]
     Dosage: FREQUENCY: PRN
     Dates: start: 20100316
  7. IBUPROFEN TABLETS [Concomitant]
     Dates: start: 20100520
  8. NOLVADEX [Concomitant]
     Dosage: DRUG NAME REPORTED AS GENOX
     Dates: start: 20100517

REACTIONS (1)
  - MYOCARDIAL ISCHAEMIA [None]
